FAERS Safety Report 7729809-3 (Version None)
Quarter: 2011Q3

REPORT INFORMATION
  Report Type: 
  Country: None (occurrence: None)
  Receive Date: 20110906
  Receipt Date: 20110905
  Transmission Date: 20111222
  Serious: Yes (Hospitalization, Other)
  Sender: FDA-Public Use
  Company Number: HU-ROXANE LABORATORIES, INC.-2011-RO-01209RO

PATIENT

DRUGS (6)
  1. FUROSEMIDE [Suspect]
     Indication: OEDEMA PERIPHERAL
  2. ANGIOTENSIN CONVERTING ENZYME INHIBITOR [Suspect]
  3. POTASSIUM [Suspect]
     Indication: DYSPNOEA
  4. POTASSIUM [Suspect]
     Indication: OEDEMA PERIPHERAL
  5. SPIRONOLACTONE [Suspect]
  6. FUROSEMIDE [Suspect]
     Indication: DYSPNOEA

REACTIONS (3)
  - HYPERKALAEMIA [None]
  - HYPOTENSION [None]
  - RENAL IMPAIRMENT [None]
